FAERS Safety Report 23299485 (Version 1)
Quarter: 2023Q4

REPORT INFORMATION
  Report Type: Other
  Country: CA (occurrence: CA)
  Receive Date: 20231215
  Receipt Date: 20231215
  Transmission Date: 20240109
  Serious: Yes (Life-Threatening)
  Sender: FDA-Public Use
  Company Number: CA-APOTEX-2023AP017849

PATIENT
  Age: 70 Year
  Sex: Female

DRUGS (2)
  1. ALBUTEROL [Suspect]
     Active Substance: ALBUTEROL
     Indication: Lower respiratory tract infection
     Dosage: 0.1 PERCENT
     Route: 065
  2. CLAVULANIC ACID [Concomitant]
     Active Substance: CLAVULANIC ACID
     Indication: Product used for unknown indication
     Dosage: UNK
     Route: 065

REACTIONS (4)
  - Hypotension [Unknown]
  - Oxygen saturation decreased [Unknown]
  - Oxygen therapy [Unknown]
  - Tachycardia [Unknown]
